FAERS Safety Report 23982187 (Version 1)
Quarter: 2024Q2

REPORT INFORMATION
  Report Type: Spontaneous
  Country: GR (occurrence: None)
  Receive Date: 20240616
  Receipt Date: 20240616
  Transmission Date: 20240715
  Serious: Yes (Disabling)
  Sender: FDA-Public Use
  Company Number: None

PATIENT
  Age: 31 Year
  Sex: Male
  Weight: 89 kg

DRUGS (5)
  1. FINASTERIDE [Suspect]
     Active Substance: FINASTERIDE
     Indication: Hair disorder
     Dosage: FREQUENCY : AT BEDTIME?
     Route: 048
     Dates: start: 20231204, end: 20240513
  2. LEVOFLOXACIN [Concomitant]
     Active Substance: LEVOFLOXACIN
  3. IBUPROFEN [Concomitant]
     Active Substance: IBUPROFEN
  4. ALPHA LIPOIC ACID MAGNESIUM [Concomitant]
  5. VITAMIN C [Concomitant]
     Active Substance: ASCORBIC ACID

REACTIONS (6)
  - Genital hypoaesthesia [None]
  - Erectile dysfunction [None]
  - Hypoaesthesia [None]
  - Back pain [None]
  - Musculoskeletal pain [None]
  - Fatigue [None]

NARRATIVE: CASE EVENT DATE: 20240520
